FAERS Safety Report 7633253-7 (Version None)
Quarter: 2011Q3

REPORT INFORMATION
  Report Type: 
  Country: None (occurrence: None)
  Receive Date: 20110725
  Receipt Date: 20110715
  Transmission Date: 20111222
  Serious: Yes (Hospitalization)
  Sender: FDA-Public Use
  Company Number: PH-ROCHE-788972

PATIENT
  Sex: Female
  Weight: 56.3 kg

DRUGS (8)
  1. PERINDOPRIL ERBUMINE [Concomitant]
     Dates: start: 20110619, end: 20110705
  2. TRASTUZUMAB [Suspect]
     Dosage: TOTAL DOSE:330 MG, FREQUENCY: EVERY 3 WEEK, FORM:VIALS, LAST DOSE ADMINISTERED BEFORE SAE:01JULY2011
     Route: 042
  3. BEVACIZUMAB [Suspect]
     Dosage: TOTAL DOSE: 825 MG, FORM: VIALS, FREQUENCY: EVERY 3 WEEKS LAST DOSE RECEIVED BRFORE SAE: 02 JULY2011
     Route: 042
  4. TRASTUZUMAB [Suspect]
     Dosage: LOADING DOSE  (TAKEN AS PER PROTOCOL)
     Route: 042
  5. IMIDAPRIL [Concomitant]
     Dates: start: 20080101, end: 20110618
  6. FEMARA [Concomitant]
     Dates: start: 20110315
  7. CARBOPLATIN [Suspect]
     Dosage: DOSE FORM: VIALS, FREQUENCY: EVERY 3 WEEKS
     Route: 042
  8. DOCETAXEL [Suspect]
     Dosage: DOSE FORM: VIALS, FREQUENCY: EVERY 3 WEEKS.
     Route: 042

REACTIONS (1)
  - CEREBRAL ISCHAEMIA [None]
